FAERS Safety Report 19673706 (Version 1)
Quarter: 2021Q3

REPORT INFORMATION
  Report Type: Spontaneous
  Country: US (occurrence: US)
  Receive Date: 20210807
  Receipt Date: 20210807
  Transmission Date: 20211014
  Serious: Yes (Other)
  Sender: FDA-Public Use
  Company Number: None

PATIENT
  Age: 71 Year
  Sex: Female
  Weight: 53.1 kg

DRUGS (2)
  1. MONTELUKAST 10 MG TABLETS, 10 MG [Suspect]
     Active Substance: MONTELUKAST SODIUM
     Indication: PARANASAL SINUS DISCOMFORT
     Dosage: ?          QUANTITY:1 TABLET(S);?
     Dates: start: 20210626, end: 20210807
  2. MONTELUKAST 10 MG TABLETS, 10 MG [Suspect]
     Active Substance: MONTELUKAST SODIUM
     Indication: SINUS CONGESTION
     Dosage: ?          QUANTITY:1 TABLET(S);?
     Dates: start: 20210626, end: 20210807

REACTIONS (5)
  - Screaming [None]
  - Spousal abuse [None]
  - Frustration tolerance decreased [None]
  - Agitation [None]
  - Insomnia [None]

NARRATIVE: CASE EVENT DATE: 20210805
